FAERS Safety Report 11458386 (Version 2)
Quarter: 2015Q3

REPORT INFORMATION
  Report Type: Spontaneous
  Country: RO (occurrence: RO)
  Receive Date: 20150904
  Receipt Date: 20150911
  Transmission Date: 20151125
  Serious: Yes (Hospitalization, Disabling, Other)
  Sender: FDA-Public Use
  Company Number: RO-INCYTE CORPORATION-2015IN004287

PATIENT
  Age: 76 Year
  Sex: Female
  Weight: 65 kg

DRUGS (3)
  1. 5 FU [Concomitant]
     Active Substance: FLUOROURACIL
     Indication: RECTAL CANCER
     Dosage: 2 G/MP/DAY, TIW (X 3 WEEKS)
     Route: 048
     Dates: start: 20150409, end: 20150420
  2. JAKAFI [Suspect]
     Active Substance: RUXOLITINIB
     Indication: MYELOFIBROSIS
     Dosage: 15 MG, BID
     Route: 048
     Dates: start: 20150108, end: 20150708
  3. FLUCONAZOLE. [Concomitant]
     Active Substance: FLUCONAZOLE
     Indication: PRODUCT USED FOR UNKNOWN INDICATION
     Dosage: 150 MG, BID
     Route: 048
     Dates: start: 20150517, end: 20150520

REACTIONS (3)
  - Pneumonia [Unknown]
  - Lymphangitis [Unknown]
  - Pulmonary tuberculosis [Recovering/Resolving]

NARRATIVE: CASE EVENT DATE: 20150708
